FAERS Safety Report 5810527-3 (Version None)
Quarter: 2008Q3

REPORT INFORMATION
  Report Type: 
  Country: None (occurrence: None)
  Receive Date: 20080715
  Receipt Date: 20080703
  Transmission Date: 20090109
  Serious: Yes (Other)
  Sender: FDA-Public Use
  Company Number: US-ELI_LILLY_AND_COMPANY-US200805004024

PATIENT
  Sex: Male

DRUGS (10)
  1. BYETTA [Suspect]
     Indication: TYPE 2 DIABETES MELLITUS
     Dosage: 5 UG, 2/D
     Route: 058
     Dates: start: 20080515, end: 20080518
  2. METFORMIN [Concomitant]
     Dosage: 850 MG, 3/D
     Dates: start: 20050101
  3. GLYBURIDE [Concomitant]
  4. LISINOPRIL [Concomitant]
     Dosage: 20 MG, DAILY (1/D)
     Dates: end: 20080519
  5. PERSANTINE [Concomitant]
     Dosage: 1 D/F, DAILY (1/D)
  6. ACTOS [Concomitant]
     Dosage: 30 MG, DAILY (1/D)
     Dates: start: 20050101
  7. SIMVASTATIN [Concomitant]
     Dosage: 40 MG, DAILY (1/D)
  8. GLIPIZIDE [Concomitant]
     Dosage: 2 D/F, EACH MORNING
  9. GLIPIZIDE [Concomitant]
     Dosage: 2 D/F, EACH EVENING
  10. ASPIRIN [Concomitant]
     Dosage: 325 MG, DAILY (1/D)

REACTIONS (3)
  - ANGIOEDEMA [None]
  - BLOOD GLUCOSE INCREASED [None]
  - BLOOD PRESSURE INCREASED [None]
